FAERS Safety Report 20821539 (Version 1)
Quarter: 2022Q2

REPORT INFORMATION
  Report Type: Spontaneous
  Country: US (occurrence: None)
  Receive Date: 20220511
  Receipt Date: 20220511
  Transmission Date: 20220721
  Serious: No
  Sender: FDA-Public Use
  Company Number: None

PATIENT
  Sex: Male

DRUGS (1)
  1. ANASTROZOLE\TESTOSTERONE CYPIONATE [Suspect]
     Active Substance: ANASTROZOLE\TESTOSTERONE CYPIONATE
     Indication: Hormone replacement therapy
     Dosage: 1 ML ONCE WEEKLY INTRAMUSCULAR?
     Route: 030
     Dates: start: 20170720

REACTIONS (5)
  - Recalled product administered [None]
  - Injection site pain [None]
  - Injection site swelling [None]
  - Pyrexia [None]
  - Night sweats [None]
